FAERS Safety Report 19982906 (Version 1)
Quarter: 2021Q4

REPORT INFORMATION
  Report Type: Spontaneous
  Country: JP (occurrence: JP)
  Receive Date: 20211021
  Receipt Date: 20211021
  Transmission Date: 20220303
  Serious: Yes (Death)
  Sender: FDA-Public Use
  Company Number: JP-BAYER-2021A229200

PATIENT
  Age: 8 Decade
  Sex: Male

DRUGS (4)
  1. VENTAVIS [Suspect]
     Active Substance: ILOPROST
     Indication: Pulmonary arterial hypertension
     Dosage: 1 INHALATION PER DAY?DRUG DOSAGE FORM 154
     Route: 055
  2. VENTAVIS [Suspect]
     Active Substance: ILOPROST
     Indication: Pulmonary arterial hypertension
     Dosage: INHALATION 3 TIMES PER DAY
     Route: 055
  3. OXYGEN [Concomitant]
     Active Substance: OXYGEN
     Route: 055
  4. REVATIO [Concomitant]
     Active Substance: SILDENAFIL CITRATE

REACTIONS (3)
  - Death [Fatal]
  - Physical deconditioning [Unknown]
  - Inappropriate schedule of product administration [Unknown]
